FAERS Safety Report 14803328 (Version 1)
Quarter: 2018Q2

REPORT INFORMATION
  Report Type: Spontaneous
  Country: US (occurrence: US)
  Receive Date: 20180425
  Receipt Date: 20180425
  Transmission Date: 20180711
  Serious: Yes (Life-Threatening, Hospitalization, Other)
  Sender: FDA-Public Use
  Company Number: US-JNJFOC-20180415029

PATIENT
  Age: 18 Year
  Sex: Female

DRUGS (3)
  1. IBUPROFEN. [Suspect]
     Active Substance: IBUPROFEN
     Route: 065
  2. IBUPROFEN. [Suspect]
     Active Substance: IBUPROFEN
     Indication: PRODUCT USED FOR UNKNOWN INDICATION
     Route: 065
  3. DIPHENHYDRAMINE HYDROCHLORIDE. [Suspect]
     Active Substance: DIPHENHYDRAMINE HYDROCHLORIDE
     Indication: PRODUCT USED FOR UNKNOWN INDICATION
     Route: 065

REACTIONS (11)
  - Tachycardia [Unknown]
  - Seizure [Unknown]
  - Compartment syndrome [Unknown]
  - Cardiac arrest [Unknown]
  - Acute kidney injury [Unknown]
  - Coma [Unknown]
  - Acute respiratory distress syndrome [Unknown]
  - Rhabdomyolysis [Unknown]
  - Overdose [Unknown]
  - Acute hepatic failure [Unknown]
  - Cardiogenic shock [Unknown]
